FAERS Safety Report 8481559-4 (Version None)
Quarter: 2012Q3

REPORT INFORMATION
  Report Type: 
  Country: None (occurrence: None)
  Receive Date: 20120702
  Receipt Date: 20120629
  Transmission Date: 20120928
  Serious: Yes (Other)
  Sender: FDA-Public Use
  Company Number: US-ABBOTT-12P-163-0941451-00

PATIENT
  Age: 40 Year
  Sex: Female

DRUGS (3)
  1. ATRIPLA [Suspect]
     Indication: ANTIVIRAL TREATMENT
     Route: 048
     Dates: start: 20070126, end: 20111230
  2. KALETRA [Suspect]
     Indication: ANTIVIRAL TREATMENT
     Route: 048
     Dates: start: 20120104
  3. COMBIVIR [Suspect]
     Indication: ANTIVIRAL TREATMENT
     Route: 048
     Dates: start: 20120104

REACTIONS (1)
  - ABORTION SPONTANEOUS [None]
